FAERS Safety Report 4450084-X (Version None)
Quarter: 2004Q3

REPORT INFORMATION
  Report Type: 
  Country: None (occurrence: None)
  Receive Date: 20040910
  Receipt Date: 20040813
  Transmission Date: 20050211
  Serious: Yes (Other)
  Sender: FDA-Public Use
  Company Number: S04-USA-04959-01

PATIENT
  Age: 45 Year
  Sex: Female

DRUGS (11)
  1. LEXAPRO [Suspect]
     Indication: DEPRESSION
     Dosage: 10 MG BID PO
     Route: 048
     Dates: start: 20040101, end: 20040810
  2. LEXAPRO [Suspect]
     Indication: DEPRESSION
     Dosage: 10 MG QD PO
     Route: 048
     Dates: start: 20040811
  3. MYSOLINE [Concomitant]
  4. GABITRIL [Concomitant]
  5. GEODON [Concomitant]
  6. ADDERALL AR [Concomitant]
  7. DOXEPIN HCL [Concomitant]
  8. COGENTIN [Concomitant]
  9. LEVOXYL [Concomitant]
  10. NEXIUM [Concomitant]
  11. CRESTOR [Concomitant]

REACTIONS (1)
  - HYPONATRAEMIA [None]
